FAERS Safety Report 24657532 (Version 1)
Quarter: 2024Q4

REPORT INFORMATION
  Report Type: Spontaneous
  Country: US (occurrence: US)
  Receive Date: 20241125
  Receipt Date: 20241125
  Transmission Date: 20250115
  Serious: No
  Sender: CHATTEM
  Company Number: US-OPELLA-2024OHG038727

PATIENT
  Age: 81 Year
  Sex: Male

DRUGS (1)
  1. ALLEGRA D-12 HOUR [Suspect]
     Active Substance: FEXOFENADINE HYDROCHLORIDE\PSEUDOEPHEDRINE HYDROCHLORIDE
     Indication: Rash pruritic
     Dosage: STRENGTH/UNITS: 60 MG+120 MG

REACTIONS (2)
  - Blood urine present [Unknown]
  - Overdose [Unknown]
